FAERS Safety Report 18046509 (Version 3)
Quarter: 2021Q2

REPORT INFORMATION
  Report Type: Spontaneous
  Country: US (occurrence: US)
  Receive Date: 20200721
  Receipt Date: 20210622
  Transmission Date: 20210717
  Serious: Yes (Hospitalization, Other)
  Sender: FDA-Public Use
  Company Number: US-GILEAD-2020-0483767

PATIENT
  Age: 63 Year
  Sex: Female
  Weight: 62 kg

DRUGS (50)
  1. AMOXICILLIN. [Concomitant]
     Active Substance: AMOXICILLIN
     Dosage: UNK
     Dates: start: 20130912, end: 201310
  2. ASPIRIN [ACETYLSALICYLIC ACID] [Concomitant]
     Active Substance: ASPIRIN
  3. METOCLOPRAMIDE. [Concomitant]
     Active Substance: METOCLOPRAMIDE
     Dosage: UNK
     Dates: start: 20121106, end: 20141002
  4. PRAVASTATIN. [Concomitant]
     Active Substance: PRAVASTATIN
     Dosage: UNK
     Dates: start: 20130819, end: 20191217
  5. EPIPEN [Concomitant]
     Active Substance: EPINEPHRINE
     Indication: ANAPHYLACTIC REACTION
     Dosage: UNK
     Dates: start: 201107
  6. VIREAD [Suspect]
     Active Substance: TENOFOVIR DISOPROXIL FUMARATE
     Indication: HIV INFECTION
     Dosage: UNK
     Route: 048
     Dates: start: 2004, end: 2014
  7. LISINOPRIL. [Concomitant]
     Active Substance: LISINOPRIL
     Dosage: UNK
     Dates: start: 20140528, end: 20181202
  8. KALETRA [Concomitant]
     Active Substance: LOPINAVIR\RITONAVIR
  9. AZITHROMYCIN ANHYDROUS. [Concomitant]
     Active Substance: AZITHROMYCIN ANHYDROUS
     Indication: INFECTION
     Dosage: UNK
     Dates: start: 200903
  10. FOLIC ACID. [Concomitant]
     Active Substance: FOLIC ACID
     Indication: ANAEMIA
     Dosage: UNK
     Dates: start: 201502
  11. DESCOVY [Concomitant]
     Active Substance: EMTRICITABINE\TENOFOVIR ALAFENAMIDE FUMARATE
     Indication: HIV INFECTION
  12. RANITIDINE. [Concomitant]
     Active Substance: RANITIDINE
     Dosage: UNK
     Dates: start: 20170105
  13. ISENTRESS [Concomitant]
     Active Substance: RALTEGRAVIR POTASSIUM
     Dosage: UNK
     Dates: start: 20151117, end: 20160519
  14. SERTRALINE [Concomitant]
     Active Substance: SERTRALINE HYDROCHLORIDE
     Dosage: UNK
     Dates: start: 20170209
  15. BENZONATATE. [Concomitant]
     Active Substance: BENZONATATE
     Indication: COUGH
     Dosage: UNK
     Dates: start: 201005
  16. LYRICA [Concomitant]
     Active Substance: PREGABALIN
     Indication: PAIN
     Dosage: UNK
     Dates: start: 201109
  17. TRUVADA [Suspect]
     Active Substance: EMTRICITABINE\TENOFOVIR DISOPROXIL FUMARATE
     Indication: HIV INFECTION
     Dosage: UNK
     Route: 048
     Dates: start: 20150205, end: 201503
  18. NAPROXEN. [Concomitant]
     Active Substance: NAPROXEN
     Dosage: UNK
     Dates: start: 20090706, end: 20090713
  19. EPIVIR [Concomitant]
     Active Substance: LAMIVUDINE
  20. NASONEX [Concomitant]
     Active Substance: MOMETASONE FUROATE
     Indication: HYPERSENSITIVITY
     Dosage: UNK
     Dates: start: 201107
  21. OMEPRAZOLE. [Concomitant]
     Active Substance: OMEPRAZOLE
     Dosage: UNK
     Dates: start: 20100724
  22. ATORVASTATIN [Concomitant]
     Active Substance: ATORVASTATIN
     Dosage: UNK
     Dates: start: 20130912, end: 20131116
  23. DOCQLACE [Concomitant]
     Active Substance: DOCUSATE SODIUM
     Dosage: UNK
     Dates: start: 20100723, end: 201008
  24. TRIAMCINOLONE [Concomitant]
     Active Substance: TRIAMCINOLONE
     Dosage: UNK
     Dates: start: 20140718, end: 20190831
  25. WARFARIN [Concomitant]
     Active Substance: WARFARIN
     Indication: THROMBOSIS
     Dosage: UNK
     Dates: start: 20110305, end: 20191116
  26. WARFARIN [Concomitant]
     Active Substance: WARFARIN
     Dosage: UNK
     Dates: start: 201101
  27. COMBIVIR [Concomitant]
     Active Substance: LAMIVUDINE\ZIDOVUDINE
  28. JULUCA [Concomitant]
     Active Substance: DOLUTEGRAVIR SODIUM\RILPIVIRINE HYDROCHLORIDE
     Dosage: UNK
     Dates: start: 20200423
  29. VANCOMYCIN [Concomitant]
     Active Substance: VANCOMYCIN
     Dosage: UNK
     Dates: start: 20141017, end: 201411
  30. PERCOCET [Concomitant]
     Active Substance: ACETAMINOPHEN\OXYCODONE HYDROCHLORIDE
     Indication: PAIN
     Dosage: UNK
     Dates: start: 200908
  31. ACETAMINOPHEN. [Concomitant]
     Active Substance: ACETAMINOPHEN
  32. PROPOXYPHENE. [Concomitant]
     Active Substance: PROPOXYPHENE
     Dosage: UNK
     Dates: start: 20090414, end: 200909
  33. ANUCORT?HC [Concomitant]
     Active Substance: HYDROCORTISONE ACETATE
     Dosage: UNK
     Dates: start: 20110309, end: 20110313
  34. PANTOPRAZOLE [Concomitant]
     Active Substance: PANTOPRAZOLE
     Dosage: UNK
     Dates: start: 20150107, end: 20191217
  35. FEXOFENADINE [Concomitant]
     Active Substance: FEXOFENADINE HYDROCHLORIDE
     Indication: ANTIALLERGIC THERAPY
  36. TUSSIONEX [CHLORPHENAMINE;HYDROCODONE BITARTRATE] [Concomitant]
     Indication: COUGH
     Dosage: UNK
     Dates: start: 200902
  37. VENTOLIN [Concomitant]
     Active Substance: ALBUTEROL SULFATE
     Indication: ASTHMA
     Dosage: UNK
     Dates: start: 200801
  38. ETODOLAC. [Concomitant]
     Active Substance: ETODOLAC
     Indication: INFLAMMATION
     Dosage: UNK
     Dates: start: 200909
  39. NORCO [Concomitant]
     Active Substance: ACETAMINOPHEN\HYDROCODONE BITARTRATE
     Indication: PAIN
     Dosage: UNK
     Dates: start: 201102
  40. LINZESS [Concomitant]
     Active Substance: LINACLOTIDE
     Indication: IRRITABLE BOWEL SYNDROME
     Dosage: UNK
     Dates: start: 201407
  41. EPZICOM [Concomitant]
     Active Substance: ABACAVIR SULFATE\LAMIVUDINE
     Dosage: UNK
     Dates: start: 20150216, end: 20150622
  42. TIVICAY [Concomitant]
     Active Substance: DOLUTEGRAVIR SODIUM
     Dosage: UNK
     Dates: start: 20180305, end: 20200325
  43. DOXYCYCLINE. [Concomitant]
     Active Substance: DOXYCYCLINE
     Indication: BACTERIAL INFECTION
     Dosage: UNK
     Dates: start: 200902
  44. VIREAD [Suspect]
     Active Substance: TENOFOVIR DISOPROXIL FUMARATE
     Dosage: UNK
     Route: 048
     Dates: start: 200101, end: 20150610
  45. SODIUM BICARBONATE. [Concomitant]
     Active Substance: SODIUM BICARBONATE
     Dosage: UNK
     Dates: start: 20150225, end: 20170403
  46. OLMESARTAN [Concomitant]
     Active Substance: OLMESARTAN
     Dosage: UNK
     Dates: start: 20190502
  47. TRIUMEQ [Concomitant]
     Active Substance: ABACAVIR SULFATE\DOLUTEGRAVIR SODIUM\LAMIVUDINE
     Dosage: UNK
     Dates: start: 20171208, end: 201901
  48. TUSSIONEX [CHLORPHENAMINE;HYDROCODONE BITARTRATE] [Concomitant]
     Indication: UPPER RESPIRATORY TRACT INFECTION
  49. ULTRAM [Concomitant]
     Active Substance: TRAMADOL HYDROCHLORIDE
     Indication: PAIN
     Dosage: UNK
     Dates: start: 201007
  50. METHADONE [Concomitant]
     Active Substance: METHADONE HYDROCHLORIDE
     Indication: PAIN
     Dosage: UNK
     Dates: start: 201204

REACTIONS (9)
  - Acute kidney injury [Not Recovered/Not Resolved]
  - Anaemia [Unknown]
  - Azotaemia [Not Recovered/Not Resolved]
  - Renal tubular necrosis [Not Recovered/Not Resolved]
  - Renal failure [Unknown]
  - Proteinuria [Unknown]
  - Osteoporosis [Unknown]
  - Nephropathy [Not Recovered/Not Resolved]
  - End stage renal disease [Not Recovered/Not Resolved]

NARRATIVE: CASE EVENT DATE: 20120321
